FAERS Safety Report 23026702 (Version 1)
Quarter: 2023Q4

REPORT INFORMATION
  Report Type: Spontaneous
  Country: US (occurrence: US)
  Receive Date: 20231004
  Receipt Date: 20231004
  Transmission Date: 20240109
  Serious: No
  Sender: FDA-Public Use
  Company Number: US-HERON THERAPEUTICS, INC-HRTX-2023-000969

PATIENT

DRUGS (4)
  1. ZYNRELEF [Suspect]
     Active Substance: BUPIVACAINE\MELOXICAM
     Indication: Postoperative analgesia
     Dosage: UNK
     Route: 065
     Dates: start: 2023, end: 2023
  2. ZYNRELEF [Suspect]
     Active Substance: BUPIVACAINE\MELOXICAM
     Indication: Nephrectomy
  3. MARCAINE [Concomitant]
     Active Substance: BUPIVACAINE HYDROCHLORIDE
     Indication: Postoperative analgesia
     Dosage: 20-30 MILLILITER
  4. EPINEPHRINE [Concomitant]
     Active Substance: EPINEPHRINE
     Indication: Postoperative analgesia
     Dosage: 20-30 MILLILITER

REACTIONS (3)
  - Burning sensation [Recovered/Resolved]
  - Wound complication [Unknown]
  - Erythema [Unknown]
